FAERS Safety Report 6149094-6 (Version None)
Quarter: 2009Q2

REPORT INFORMATION
  Report Type: 
  Country: None (occurrence: None)
  Receive Date: 20090407
  Receipt Date: 20090327
  Transmission Date: 20091009
  Serious: Yes (Hospitalization)
  Sender: FDA-Public Use
  Company Number: WAES 0803USA03465

PATIENT
  Age: 66 Year
  Sex: Female

DRUGS (16)
  1. CAP VORINOSTAT [Suspect]
     Indication: NON-SMALL CELL LUNG CANCER
     Dosage: 400 MG/DAILY, PO
     Route: 048
     Dates: start: 20080211, end: 20080217
  2. CAP VORINOSTAT [Suspect]
     Indication: NON-SMALL CELL LUNG CANCER
     Dosage: 400 MG/DAILY, PO
     Route: 048
     Dates: start: 20080219, end: 20080220
  3. CAP VORINOSTAT [Suspect]
     Indication: NON-SMALL CELL LUNG CANCER
     Dosage: 400 MG/DAILY, PO
     Route: 048
     Dates: start: 20080222, end: 20080224
  4. CAP VORINOSTAT [Suspect]
     Indication: NON-SMALL CELL LUNG CANCER
     Dosage: 400 MG/DAILY, PO
     Route: 048
     Dates: start: 20080311, end: 20080318
  5. CARBOPLATIN [Suspect]
     Indication: NON-SMALL CELL LUNG CANCER
     Dosage: 450 MG/1X, IV; 375 MG/1X, IV; 246 MG/1X, IV; 217 MG/1X, IV
     Route: 042
     Dates: start: 20080215, end: 20080215
  6. CARBOPLATIN [Suspect]
     Indication: NON-SMALL CELL LUNG CANCER
     Dosage: 450 MG/1X, IV; 375 MG/1X, IV; 246 MG/1X, IV; 217 MG/1X, IV
     Route: 042
     Dates: start: 20080311, end: 20080311
  7. PACLITAXEL [Suspect]
     Indication: NON-SMALL CELL LUNG CANCER
     Dosage: 246 MG/1X, IV; 217 MG/1X, IV
     Route: 042
     Dates: start: 20080215, end: 20080215
  8. PACLITAXEL [Suspect]
     Indication: NON-SMALL CELL LUNG CANCER
     Dosage: 246 MG/1X, IV; 217 MG/1X, IV
     Route: 042
     Dates: start: 20080311, end: 20080311
  9. COLOXYL WITH SENNA [Concomitant]
  10. EMEND [Concomitant]
  11. LIPITOR [Concomitant]
  12. ACETAMINOPHEN [Concomitant]
  13. DEXAMETHASONE TAB [Concomitant]
  14. LORATADINE [Concomitant]
  15. RANITIDINE [Concomitant]
  16. TROPISETRON [Concomitant]

REACTIONS (9)
  - DECREASED APPETITE [None]
  - DYSPNOEA [None]
  - ELECTROLYTE IMBALANCE [None]
  - HYPOKALAEMIA [None]
  - HYPOMAGNESAEMIA [None]
  - MOBILITY DECREASED [None]
  - NEUTROPENIA [None]
  - PLEURAL EFFUSION [None]
  - SINUS TACHYCARDIA [None]
